FAERS Safety Report 6651336-5 (Version None)
Quarter: 2010Q1

REPORT INFORMATION
  Report Type: 
  Country: None (occurrence: None)
  Receive Date: 20100325
  Receipt Date: 20100318
  Transmission Date: 20100710
  Serious: Yes (Life-Threatening, Hospitalization)
  Sender: FDA-Public Use
  Company Number: FR-BRISTOL-MYERS SQUIBB COMPANY-15025307

PATIENT
  Age: 64 Year
  Sex: Male

DRUGS (5)
  1. BUSPAR [Suspect]
     Indication: DEPRESSION
  2. TIAPRIDAL [Interacting]
     Indication: DEPRESSION
     Dosage: 1 DOSAGE FORM = 1.5 (UNITS NOT MENTIONED).TIAPRIDAL 100MG
     Dates: start: 20091106, end: 20091108
  3. SEROPLEX [Interacting]
     Indication: DEPRESSION
     Dosage: INTERRUPTED ON 06NOV2009. RESTARTED WITH 20 MG/D ON 07NOV2009 AND 08NOV2009
     Dates: start: 20091020
  4. VALIUM [Interacting]
     Indication: ALCOHOL WITHDRAWAL SYNDROME
     Dosage: 17-OCT-2009 TO 26-OCT-2009, THEN ? IN THE EVENING FROM 26-OCT-2009 TO 08-NOV-2009.
     Dates: start: 20091017, end: 20091108
  5. MEPRONIZINE [Interacting]
     Indication: INSOMNIA
     Dosage: 1 DOSAGE FORM = 1 TABLET.
     Dates: start: 20091108

REACTIONS (6)
  - ALTERED STATE OF CONSCIOUSNESS [None]
  - BRADYCARDIA [None]
  - CONFUSIONAL STATE [None]
  - DRUG INTERACTION [None]
  - HYPOTHERMIA [None]
  - PNEUMONIA ASPIRATION [None]
